FAERS Safety Report 13737180 (Version 1)
Quarter: 2017Q3

REPORT INFORMATION
  Report Type: Spontaneous
  Country: US (occurrence: US)
  Receive Date: 20170710
  Receipt Date: 20170710
  Transmission Date: 20171127
  Serious: No
  Sender: FDA-Public Use
  Company Number: US-LEXICON PHARMACEUTICALS, INC-17-1606-00340

PATIENT
  Sex: Male

DRUGS (18)
  1. AFINITOR [Concomitant]
     Active Substance: EVEROLIMUS
  2. ACETAMIN [Concomitant]
     Active Substance: ACETAMINOPHEN
  3. IMODIUM A-D [Concomitant]
     Active Substance: LOPERAMIDE HYDROCHLORIDE
  4. TELOTRISTAT ETHYL [Suspect]
     Active Substance: TELOTRISTAT ETHYL
     Indication: CARCINOID SYNDROME
     Route: 048
     Dates: start: 20170316, end: 201705
  5. OXYBUTYNIN CHLORIDE. [Concomitant]
     Active Substance: OXYBUTYNIN CHLORIDE
  6. POTASSIUM CITRATE. [Concomitant]
     Active Substance: POTASSIUM CITRATE
  7. MIRALAX [Concomitant]
     Active Substance: POLYETHYLENE GLYCOL 3350
  8. METOPROLOL SUCCINATE. [Concomitant]
     Active Substance: METOPROLOL SUCCINATE
  9. SPIRONOLACT [Concomitant]
  10. TRAMADOL. [Concomitant]
     Active Substance: TRAMADOL
  11. LISINOPRIL. [Concomitant]
     Active Substance: LISINOPRIL
  12. SENOKOT [Concomitant]
     Active Substance: SENNOSIDES
  13. TAMSULOSIN [Concomitant]
     Active Substance: TAMSULOSIN
  14. VANCOCIN [Concomitant]
     Active Substance: VANCOMYCIN HYDROCHLORIDE
  15. GOODSENSE IBUPROFEN [Concomitant]
  16. SANDOSTATIN [Concomitant]
     Active Substance: OCTREOTIDE ACETATE
  17. FINASTERIDE. [Concomitant]
     Active Substance: FINASTERIDE
  18. TIMOLOL. [Concomitant]
     Active Substance: TIMOLOL

REACTIONS (1)
  - Adverse drug reaction [Unknown]

NARRATIVE: CASE EVENT DATE: 2017
